FAERS Safety Report 26112123 (Version 1)
Quarter: 2025Q4

REPORT INFORMATION
  Report Type: Spontaneous
  Country: EU (occurrence: EU)
  Receive Date: 20251202
  Receipt Date: 20251202
  Transmission Date: 20260117
  Serious: Yes (Other)
  Sender: CHEPLAPHARM
  Company Number: None

PATIENT
  Sex: Female

DRUGS (2)
  1. CLONAZEPAM [Suspect]
     Active Substance: CLONAZEPAM
     Indication: Suicidal ideation
     Route: 048
     Dates: start: 20250920, end: 20250920
  2. PRAZINE (PROMAZINE HYDROCHLORIDE) [Suspect]
     Active Substance: PROMAZINE HYDROCHLORIDE
     Indication: Suicidal ideation
     Dosage: DAILY DOSE: 5000 MILLIGRAM
     Route: 048
     Dates: start: 20250920, end: 20250920

REACTIONS (3)
  - Suicide attempt [Unknown]
  - Somnolence [Unknown]
  - Intentional overdose [Unknown]

NARRATIVE: CASE EVENT DATE: 20250920
